FAERS Safety Report 6211999-5 (Version None)
Quarter: 2009Q2

REPORT INFORMATION
  Report Type: 
  Country: None (occurrence: None)
  Receive Date: 20090529
  Receipt Date: 20090522
  Transmission Date: 20091009
  Serious: Yes (Hospitalization)
  Sender: FDA-Public Use
  Company Number: TPA2009A00938

PATIENT
  Age: 66 Year
  Sex: Male
  Weight: 166.9237 kg

DRUGS (12)
  1. ACTOS [Suspect]
     Indication: TYPE 2 DIABETES MELLITUS
     Dosage: 30 MG, 1 IN 1 D, PER ORAL
     Route: 048
     Dates: start: 20080310, end: 20090428
  2. METOPROLOL (METOPROLOL) [Concomitant]
  3. HYDROCHLOROTHIAZIDE (HCTZ) (HYDROCHLOROTHIAZIDE) [Concomitant]
  4. ASPIRIN [Concomitant]
  5. AMLODIPINE [Concomitant]
  6. LISINOPRIL [Concomitant]
  7. CIALIS (TADALAFIL) (TABLETS) [Concomitant]
  8. DARVOCET-N 100 (PARACETAMOL, DEXTROPROPOXYPHENE NAPSILATE) (TABLETS) [Concomitant]
  9. GLIMEPIRIDE (GLIMEPIRIDE) (TABLETS) [Concomitant]
  10. ASCENSIA CONTOUR NORMAL VI LIQD(ALL OTHER NON-THERAPEUTIC PRODUCTS) [Concomitant]
  11. ASCENSIA CONTOUR TEST VI STRIP(ALL OTHER NON-THERAPEUTIC PRODUCTS) [Concomitant]
  12. ASCENSIA MICROLET MISC(ALL OTHER NON-THERAPEUTIC PRODUCTS) [Concomitant]

REACTIONS (1)
  - BLADDER TRANSITIONAL CELL CARCINOMA [None]
